FAERS Safety Report 4459559-0 (Version None)
Quarter: 2004Q3

REPORT INFORMATION
  Report Type: 
  Country: None (occurrence: None)
  Receive Date: 20040927
  Receipt Date: 20040729
  Transmission Date: 20050211
  Serious: Yes (Life-Threatening, Hospitalization)
  Sender: FDA-Public Use
  Company Number: US-MERCK-0407USA02496

PATIENT
  Age: 72 Year
  Sex: Female
  Weight: 56 kg

DRUGS (4)
  1. CYANOCOBALAMIN [Concomitant]
     Route: 065
  2. COZAAR [Suspect]
     Indication: HYPERTENSION
     Route: 048
     Dates: start: 20020101, end: 20040724
  3. GLUCOPHAGE [Concomitant]
     Route: 065
  4. MS CONTIN [Concomitant]
     Route: 065

REACTIONS (4)
  - ASTHENIA [None]
  - DEHYDRATION [None]
  - FULL BLOOD COUNT DECREASED [None]
  - OVERDOSE [None]
